FAERS Safety Report 10196877 (Version 2)
Quarter: 2014Q2

REPORT INFORMATION
  Report Type: Report from Study
  Country: GB (occurrence: GB)
  Receive Date: 20140527
  Receipt Date: 20140602
  Transmission Date: 20141212
  Serious: Yes (Hospitalization)
  Sender: FDA-Public Use
  Company Number: GB-ABBVIE-14P-167-1213190-00

PATIENT
  Age: 33 Year
  Sex: Male
  Weight: 132 kg

DRUGS (7)
  1. HUMIRA [Suspect]
     Indication: PSORIASIS
     Route: 058
     Dates: start: 20130328
  2. HUMIRA [Suspect]
     Dates: start: 20140221
  3. DIPROBASE CREAM [Concomitant]
     Indication: PRODUCT USED FOR UNKNOWN INDICATION
     Dates: start: 20060101
  4. EUMOVATE [Concomitant]
     Indication: PRODUCT USED FOR UNKNOWN INDICATION
     Dates: start: 20100101
  5. DOVOBET [Concomitant]
     Indication: PRODUCT USED FOR UNKNOWN INDICATION
     Dates: start: 20111012
  6. CALCITRIOL [Concomitant]
     Indication: PRODUCT USED FOR UNKNOWN INDICATION
     Dates: start: 20111012
  7. METRONIDAZOLE [Concomitant]
     Indication: PRODUCT USED FOR UNKNOWN INDICATION
     Dates: start: 20140203, end: 20140210

REACTIONS (3)
  - Fall [Recovered/Resolved with Sequelae]
  - Fibula fracture [Recovered/Resolved with Sequelae]
  - Joint dislocation [Recovered/Resolved with Sequelae]
